FAERS Safety Report 6942655-3 (Version None)
Quarter: 2010Q3

REPORT INFORMATION
  Report Type: 
  Country: None (occurrence: None)
  Receive Date: 20100826
  Receipt Date: 20100823
  Transmission Date: 20110219
  Serious: Yes (Life-Threatening, Disabling, Congenital Anomaly)
  Sender: FDA-Public Use
  Company Number: NO-B.I. PHARMACEUTICALS,INC./RIDGEFIELD-2010-SW-00117NO

PATIENT
  Sex: Male

DRUGS (5)
  1. PRAMIPEXOLE [Suspect]
     Indication: MIGRAINE PROPHYLAXIS
     Route: 064
  2. CANDESARTAN [Suspect]
     Indication: MIGRAINE PROPHYLAXIS
     Route: 064
  3. AMITRIPTYLINE HCL [Suspect]
     Indication: MIGRAINE PROPHYLAXIS
     Route: 064
  4. ZOLMITRIPTAN [Concomitant]
     Indication: MIGRAINE
     Route: 064
  5. METOCLOPRAMIDE [Concomitant]
     Indication: MIGRAINE
     Route: 064

REACTIONS (4)
  - NEONATAL RESPIRATORY DISTRESS SYNDROME [None]
  - PULMONARY HYPOPLASIA [None]
  - RENAL APLASIA [None]
  - SKULL MALFORMATION [None]
